FAERS Safety Report 25805263 (Version 2)
Quarter: 2025Q3

REPORT INFORMATION
  Report Type: Spontaneous
  Country: US (occurrence: US)
  Receive Date: 20250916
  Receipt Date: 20250923
  Transmission Date: 20251020
  Serious: No
  Sender: ROCHE
  Company Number: US-ROCHE-10000387174

PATIENT
  Sex: Female

DRUGS (1)
  1. XOLAIR [Suspect]
     Active Substance: OMALIZUMAB
     Indication: Asthma
     Dosage: ROUTE: UNDER THE SKIN, FORM : SDV
     Route: 058
     Dates: start: 202104

REACTIONS (2)
  - Palpitations [Unknown]
  - Off label use [Unknown]
